FAERS Safety Report 7642059-4 (Version None)
Quarter: 2011Q3

REPORT INFORMATION
  Report Type: 
  Country: None (occurrence: None)
  Receive Date: 20110728
  Receipt Date: 20110719
  Transmission Date: 20111222
  Serious: Yes (Death, Hospitalization)
  Sender: FDA-Public Use
  Company Number: US-ELI_LILLY_AND_COMPANY-US201107005769

PATIENT
  Sex: Female

DRUGS (3)
  1. GEMZAR [Suspect]
     Indication: PANCREATIC CARCINOMA
     Dosage: 1600 MG, ONE CYCLE
     Route: 065
     Dates: start: 20110705, end: 20110705
  2. GEMZAR [Suspect]
     Dosage: 1600 MG, ONE CYCLE
     Dates: start: 20110705, end: 20110705
  3. GEMZAR [Suspect]
     Dosage: 1600 MG, ONE CYCLE
     Route: 065
     Dates: start: 20110705, end: 20110705

REACTIONS (2)
  - DEATH [None]
  - ABDOMINAL PAIN [None]
